FAERS Safety Report 5264152-6 (Version None)
Quarter: 2007Q1

REPORT INFORMATION
  Report Type: 
  Country: None (occurrence: None)
  Receive Date: 20070313
  Receipt Date: 20070308
  Transmission Date: 20070707
  Serious: Yes (Life-Threatening)
  Sender: FDA-Public Use
  Company Number: NZ-ROXANE LABORATORIES, INC-2007-BP-03210RO

PATIENT
  Age: 32 Year
  Sex: Female

DRUGS (1)
  1. LITHIUM CARBONATE [Suspect]
     Indication: BIPOLAR DISORDER
     Route: 048

REACTIONS (7)
  - CHOKING [None]
  - COUGH [None]
  - FOREIGN BODY ASPIRATION [None]
  - FOREIGN BODY TRAUMA [None]
  - IMMOBILE [None]
  - PANIC REACTION [None]
  - RESPIRATORY ARREST [None]
